FAERS Safety Report 4267131-0 (Version None)
Quarter: 2004Q1

REPORT INFORMATION
  Report Type: 
  Country: None (occurrence: None)
  Receive Date: 20040108
  Receipt Date: 20031217
  Transmission Date: 20041129
  Serious: Yes (Hospitalization)
  Sender: FDA-Public Use
  Company Number: PHHO2003US16685

PATIENT
  Age: 47 Year
  Sex: Female

DRUGS (3)
  1. NEORAL [Suspect]
     Indication: RENAL TRANSPLANT
     Dosage: 350 MG DAILY DOSE
     Route: 048
     Dates: start: 20020705
  2. PREDNISONE [Suspect]
     Indication: RENAL TRANSPLANT
     Dates: start: 20020707
  3. MYCOPHENOLATE MOFETIL [Suspect]
     Indication: RENAL TRANSPLANT
     Dates: start: 20020705

REACTIONS (4)
  - GASTROINTESTINAL INJURY [None]
  - LYMPHOCELE [None]
  - LYMPHOCELE MARSUPIALISATION [None]
  - PROCEDURAL COMPLICATION [None]
